FAERS Safety Report 10162310 (Version 2)
Quarter: 2014Q2

REPORT INFORMATION
  Report Type: Spontaneous
  Country: GR (occurrence: GR)
  Receive Date: 20140509
  Receipt Date: 20140509
  Transmission Date: 20141212
  Serious: Yes (Other)
  Sender: FDA-Public Use
  Company Number: GR-NOVOPROD-408794

PATIENT
  Sex: Male
  Weight: 2.17 kg

DRUGS (2)
  1. LEVEMIR FLEXPEN [Suspect]
     Indication: GESTATIONAL DIABETES
     Dosage: 8 IU, QD
     Route: 064
     Dates: start: 20140115
  2. LEVEMIR FLEXPEN [Suspect]
     Dosage: 20 IU
     Route: 064
     Dates: end: 20140219

REACTIONS (2)
  - Premature baby [Not Recovered/Not Resolved]
  - Foetal exposure during pregnancy [Recovered/Resolved]
